FAERS Safety Report 26075644 (Version 1)
Quarter: 2025Q4

REPORT INFORMATION
  Report Type: Spontaneous
  Country: CA (occurrence: CA)
  Receive Date: 20251121
  Receipt Date: 20251121
  Transmission Date: 20260118
  Serious: Yes (Hospitalization, Other)
  Sender: NOVO NORDISK
  Company Number: None

PATIENT
  Sex: Female
  Weight: 66 kg

DRUGS (5)
  1. SEMAGLUTIDE [Suspect]
     Active Substance: SEMAGLUTIDE
     Indication: Product used for unknown indication
     Dosage: 1MG
     Route: 058
  2. ENTYVIO [Suspect]
     Active Substance: VEDOLIZUMAB
     Indication: Colitis ulcerative
     Dosage: 300 MG,POWDER FOR SOLUTION FOR INFUSION 300MG
     Route: 042
  3. ENTYVIO [Suspect]
     Active Substance: VEDOLIZUMAB
     Dosage: POWDER FOR SOLUTION 300MG
     Route: 042
  4. CLOTRIMAZOLE [Concomitant]
     Active Substance: CLOTRIMAZOLE
     Dosage: UNK
  5. PREDNISONE [Concomitant]
     Active Substance: PREDNISONE
     Dosage: 40 MG 4 EVERY1 DAYS

REACTIONS (14)
  - Aphthous ulcer [Recovering/Resolving]
  - Arthritis [Recovering/Resolving]
  - Campylobacter gastroenteritis [Recovering/Resolving]
  - Chills [Recovering/Resolving]
  - Colitis ulcerative [Recovering/Resolving]
  - Escherichia bacteraemia [Recovering/Resolving]
  - Hordeolum [Recovering/Resolving]
  - Headache [Recovering/Resolving]
  - Influenza [Recovering/Resolving]
  - Iron deficiency anaemia [Recovering/Resolving]
  - Pelvic mass [Recovering/Resolving]
  - Vision blurred [Recovering/Resolving]
  - Dizziness [Recovering/Resolving]
  - Pancreatitis acute [Recovering/Resolving]
